FAERS Safety Report 7327751-3 (Version None)
Quarter: 2011Q1

REPORT INFORMATION
  Report Type: 
  Country: None (occurrence: None)
  Receive Date: 20110303
  Receipt Date: 20110223
  Transmission Date: 20110831
  Serious: Yes (Hospitalization, Other)
  Sender: FDA-Public Use
  Company Number: US-ASTRAZENECA-2007UW02090

PATIENT
  Age: 52 Year
  Sex: Female
  Weight: 158.8 kg

DRUGS (63)
  1. SEROQUEL [Suspect]
     Indication: SUSPICIOUSNESS
     Dosage: 25 MG - 75 MG
     Route: 048
     Dates: start: 19990918
  2. SEROQUEL [Suspect]
     Indication: HALLUCINATION
     Dosage: 25 MG - 75 MG
     Route: 048
     Dates: start: 19990918
  3. SEROQUEL [Suspect]
     Dosage: 100 MG - 300 MG
     Route: 048
     Dates: start: 19990101
  4. SEROQUEL [Suspect]
     Dosage: 100 MG - 300 MG
     Route: 048
     Dates: start: 19990101
  5. SEROQUEL [Suspect]
     Route: 048
     Dates: start: 20030804
  6. SEROQUEL [Suspect]
     Route: 048
     Dates: start: 20030804
  7. SEROQUEL [Suspect]
     Route: 048
     Dates: start: 20040503
  8. ABILIFY [Concomitant]
     Route: 048
     Dates: start: 20030619
  9. EFFEXOR [Concomitant]
     Route: 048
     Dates: start: 20030619
  10. FLUTICASONE 110 [Concomitant]
     Dosage: 110 MCG, 2 PUFFS
     Route: 048
     Dates: start: 20030622
  11. NORVASC [Concomitant]
     Dates: start: 19990911
  12. SEROQUEL [Suspect]
     Dosage: 100 MG - 300 MG
     Route: 048
     Dates: start: 19990101
  13. SEROQUEL [Suspect]
     Route: 048
     Dates: start: 20030804
  14. SEROQUEL [Suspect]
     Route: 048
     Dates: start: 20040503
  15. UNKNOWN DIET PILLS [Concomitant]
     Indication: WEIGHT CONTROL
     Route: 048
     Dates: start: 19680101, end: 19700101
  16. GEODON [Concomitant]
     Indication: AGITATION
     Dosage: 60 - 200 MG
     Route: 048
     Dates: start: 20010306
  17. HALDOL [Concomitant]
     Route: 014
     Dates: start: 20020301, end: 20040301
  18. WELLBUTRIN [Concomitant]
     Route: 048
     Dates: start: 19990301
  19. LASIX [Concomitant]
     Dates: start: 19990911
  20. SEROQUEL [Suspect]
     Indication: SCHIZOAFFECTIVE DISORDER
     Dosage: 25 MG - 75 MG
     Route: 048
     Dates: start: 19990918
  21. SEROQUEL [Suspect]
     Indication: ANXIETY
     Dosage: 25 MG - 75 MG
     Route: 048
     Dates: start: 19990918
  22. SEROQUEL [Suspect]
     Dosage: 100 MG - 300 MG
     Route: 048
     Dates: start: 19990101
  23. SEROQUEL [Suspect]
     Dosage: 100 MG - 300 MG
     Route: 048
     Dates: start: 19990101
  24. SEROQUEL [Suspect]
     Route: 048
     Dates: start: 20030804
  25. FUROSEMIDE [Concomitant]
     Dosage: 20 - 40 MG TABLET DISPENSED
     Route: 048
     Dates: start: 20020720
  26. PANTOPRAZOLE [Concomitant]
     Route: 048
     Dates: start: 20030712
  27. KAY CIEL DURA-TABS [Concomitant]
     Dates: start: 19990911
  28. SEROQUEL [Suspect]
     Route: 048
     Dates: start: 20040503
  29. SEROQUEL [Suspect]
     Route: 048
     Dates: start: 20040503
  30. ZOLOFT [Concomitant]
     Route: 048
     Dates: start: 20030611
  31. WELLBUTRIN [Concomitant]
     Dosage: 100 MG - 200 MG
     Route: 048
     Dates: start: 20030601, end: 20030801
  32. TOPAMAX [Concomitant]
     Indication: POST-TRAUMATIC STRESS DISORDER
     Route: 048
     Dates: start: 19990918
  33. GLUCOPHAGE [Concomitant]
     Route: 048
     Dates: start: 20040629
  34. SEROQUEL [Suspect]
     Route: 048
     Dates: start: 20040503
  35. SEROQUEL [Suspect]
     Route: 048
     Dates: start: 20040503
  36. AEROBID [Concomitant]
     Dates: start: 19990911
  37. SEROQUEL [Suspect]
     Indication: BIPOLAR DISORDER
     Dosage: 25 MG - 75 MG
     Route: 048
     Dates: start: 19990918
  38. SEROQUEL [Suspect]
     Dosage: 100 MG - 300 MG
     Route: 048
     Dates: start: 19990101
  39. SEROQUEL [Suspect]
     Dosage: 100 MG - 300 MG
     Route: 048
     Dates: start: 19990101
  40. SEROQUEL [Suspect]
     Route: 048
     Dates: start: 20030804
  41. SEROQUEL [Suspect]
     Route: 048
     Dates: start: 20040503
  42. THYROID PILLS [Concomitant]
     Indication: WEIGHT CONTROL
     Route: 048
     Dates: start: 19620101, end: 19670101
  43. ATIVAN [Concomitant]
     Indication: ANXIETY
     Dosage: 2 MG Q4H TO Q6H
     Route: 048
     Dates: start: 20020205
  44. ATIVAN [Concomitant]
     Indication: AGITATION
     Dosage: 2 MG Q4H TO Q6H
     Route: 048
     Dates: start: 20020205
  45. TOPROL-XL [Concomitant]
     Route: 048
     Dates: start: 20030612
  46. CLOPIDOGREL [Concomitant]
     Dosage: 75 MG TABLET DISPENSED
     Route: 048
     Dates: start: 20010114
  47. ISOSORBIDE DINITRATE [Concomitant]
     Indication: ANGINA PECTORIS
     Dosage: 10 - 30 MG
     Route: 048
     Dates: start: 20020720
  48. COGENTIN [Concomitant]
     Route: 048
     Dates: start: 20020602
  49. XANAX [Concomitant]
     Route: 048
     Dates: start: 20010810
  50. NITROGLYCERIN [Concomitant]
     Indication: CHEST PAIN
  51. SEROQUEL [Suspect]
     Indication: MAJOR DEPRESSION
     Dosage: 25 MG - 75 MG
     Route: 048
     Dates: start: 19990918
  52. SEROQUEL [Suspect]
     Indication: DELUSION
     Dosage: 25 MG - 75 MG
     Route: 048
     Dates: start: 19990918
  53. ABILIFY [Concomitant]
     Dosage: 15 MG - 40 MG
     Route: 048
     Dates: end: 20030601
  54. GEODON [Concomitant]
     Dosage: 20 MG - 500 MG
     Route: 048
     Dates: start: 20030601, end: 20051101
  55. HALDOL [Concomitant]
     Route: 048
     Dates: start: 20020301, end: 20040301
  56. ZOLOFT [Concomitant]
     Indication: DEPRESSION
     Dosage: 25 MG - 200 MG
     Route: 048
     Dates: start: 19970901
  57. AMBIEN [Concomitant]
     Route: 048
     Dates: start: 20030606
  58. VENTOLIN [Concomitant]
     Dates: start: 19990911
  59. SEROQUEL [Suspect]
     Route: 048
     Dates: start: 20030804
  60. SEROQUEL [Suspect]
     Route: 048
     Dates: start: 20030804
  61. AMLODIPINE [Concomitant]
     Dosage: 2.5 TO 10 MG
     Route: 048
     Dates: start: 20020202
  62. LIPITOR [Concomitant]
     Route: 048
     Dates: start: 20040602
  63. ASPIRIN [Concomitant]
     Route: 048
     Dates: start: 19990810

REACTIONS (12)
  - CONVULSION [None]
  - SUICIDE ATTEMPT [None]
  - INFECTION [None]
  - CHOLECYSTITIS [None]
  - MYOCARDIAL ISCHAEMIA [None]
  - RHINITIS [None]
  - EPISTAXIS [None]
  - ONYCHOMYCOSIS [None]
  - CARDIAC FAILURE CONGESTIVE [None]
  - TYPE 2 DIABETES MELLITUS [None]
  - OVERDOSE [None]
  - SUICIDAL IDEATION [None]
